FAERS Safety Report 7677985 (Version 4)
Quarter: 2012Q4

REPORT INFORMATION
  Report Type: Report from Study
  Country: FR (occurrence: FR)
  Receive Date: 20101122
  Receipt Date: 20120928
  Transmission Date: 20130627
  Serious: Yes (Hospitalization)
  Sender: FDA-Public Use
  Company Number: PHHO2010FR17243

PATIENT
  Age: 54 Year
  Sex: Female
  Weight: 39 kg

DRUGS (4)
  1. MYCOPHENOLIC ACID [Suspect]
     Indication: RENAL TRANSPLANT
     Dosage: 1440 mg, UNK
     Route: 048
     Dates: start: 20100303
  2. MYCOPHENOLIC ACID [Suspect]
     Dosage: 360 mg, BID
     Route: 048
  3. MYCOPHENOLIC ACID [Suspect]
     Dosage: 180 mg, BID
     Route: 048
     Dates: end: 20101103
  4. NEORAL [Suspect]
     Indication: RENAL TRANSPLANT

REACTIONS (2)
  - Pancytopenia [Recovering/Resolving]
  - Toxicity to various agents [Unknown]
